FAERS Safety Report 7019631-8 (Version None)
Quarter: 2010Q3

REPORT INFORMATION
  Report Type: 
  Country: None (occurrence: None)
  Receive Date: 20100928
  Receipt Date: 20100928
  Transmission Date: 20110219
  Serious: Yes (Other)
  Sender: FDA-Public Use
  Company Number: None

PATIENT
  Sex: Male
  Weight: 78.4723 kg

DRUGS (12)
  1. LINEZOLID [Suspect]
     Indication: INFECTION
     Dates: start: 20100804, end: 20100808
  2. SERTRALINE 50MG MYLAN [Suspect]
     Indication: DEPRESSION
     Dates: start: 20100731, end: 20100927
  3. APAP TAB [Concomitant]
  4. ACYCLOVIR SODIUM [Concomitant]
  5. DIPHENHYDRAMINE HCL [Concomitant]
  6. GLYBURIDE [Concomitant]
  7. INSULIN [Concomitant]
  8. LEVOFLOXACIN [Concomitant]
  9. LOPERAMIDE [Concomitant]
  10. MORPHINE [Concomitant]
  11. OXYCODONE [Concomitant]
  12. RANITIDINE [Concomitant]

REACTIONS (1)
  - HALLUCINATIONS, MIXED [None]
